FAERS Safety Report 6748009-7 (Version None)
Quarter: 2010Q2

REPORT INFORMATION
  Report Type: 
  Country: None (occurrence: None)
  Receive Date: 20100528
  Receipt Date: 20100516
  Transmission Date: 20101027
  Serious: Yes (Hospitalization)
  Sender: FDA-Public Use
  Company Number: US-JNJFOC-20091204733

PATIENT
  Sex: Female
  Weight: 121.11 kg

DRUGS (3)
  1. TYLENOL SINUS CONGESTION + PAIN DAYTIME RAPID RELEASE [Suspect]
     Indication: SINUS CONGESTION
     Dosage: 1 GELCAP AT 11:00, FOLLOWED BY 2 GELCAPS AT 23:00
  2. TYLENOL SINUS CONGESTION + PAIN DAYTIME RAPID RELEASE [Suspect]
     Indication: NASOPHARYNGITIS
     Dosage: 1 GELCAP AT 11:00, FOLLOWED BY 2 GELCAPS AT 23:00
  3. TYLENOL SINUS CONGESTION + PAIN DAYTIME RAPID RELEASE [Suspect]
     Indication: SINUS HEADACHE
     Dosage: 1 GELCAP AT 11:00, FOLLOWED BY 2 GELCAPS AT 23:00

REACTIONS (13)
  - ABDOMINAL PAIN [None]
  - ABDOMINAL PAIN UPPER [None]
  - BACK INJURY [None]
  - DIARRHOEA [None]
  - DRUG INEFFECTIVE [None]
  - HAEMATEMESIS [None]
  - JOINT INJURY [None]
  - LETHARGY [None]
  - LOSS OF CONSCIOUSNESS [None]
  - MUSCULAR WEAKNESS [None]
  - NAUSEA [None]
  - PRODUCT QUALITY ISSUE [None]
  - VOMITING [None]
